FAERS Safety Report 9837415 (Version 1)
Quarter: 2014Q1

REPORT INFORMATION
  Report Type: Spontaneous
  Country: US (occurrence: US)
  Receive Date: 20140123
  Receipt Date: 20140123
  Transmission Date: 20141002
  Serious: No
  Sender: FDA-Public Use
  Company Number: US-PFIZER INC-2014021010

PATIENT
  Age: 63 Year
  Sex: Female
  Weight: 111 kg

DRUGS (4)
  1. SKELAXIN [Suspect]
     Indication: FIBROMYALGIA
     Dosage: 800 MG ^1 BY MOUTH^, EVERY 6 HOURS
     Route: 048
  2. PRE-NATAL VITAMINS [Concomitant]
     Dosage: UNK
  3. CALCIUM + VITAMIN D [Concomitant]
     Dosage: 1 CAPSULE OF ^50,000 IU^, 3X/DAY
  4. MAGNESIUM WITH SIDED ZINC [Concomitant]
     Dosage: ^6 DOSE^, DAILY

REACTIONS (1)
  - Drug ineffective [Unknown]
